FAERS Safety Report 15249685 (Version 2)
Quarter: 2018Q3

REPORT INFORMATION
  Report Type: Spontaneous
  Country: US (occurrence: US)
  Receive Date: 20180807
  Receipt Date: 20180914
  Transmission Date: 20181010
  Serious: Yes (Other)
  Sender: FDA-Public Use
  Company Number: US-REGENERON PHARMACEUTICALS, INC.-2018-31988

PATIENT

DRUGS (6)
  1. EYLEA [Suspect]
     Active Substance: AFLIBERCEPT
     Indication: NEOVASCULAR AGE-RELATED MACULAR DEGENERATION
     Dosage: 2 MG, EVERY 3 TO 4 MONTHS
     Route: 031
     Dates: start: 2012
  2. OCUVITE [Concomitant]
     Active Substance: VITAMINS
     Indication: PRODUCT USED FOR UNKNOWN INDICATION
     Dosage: UNK, QD
  3. LUMIGAN [Concomitant]
     Active Substance: BIMATOPROST
     Indication: PRODUCT USED FOR UNKNOWN INDICATION
     Dosage: 1 GTT, QHS, OS
  4. EYLEA [Suspect]
     Active Substance: AFLIBERCEPT
     Indication: CHOROIDAL NEOVASCULARISATION
     Dosage: 2 MG, EVERY 3 TO 4 MONTHS, LAST DOSE
     Route: 031
     Dates: start: 201704, end: 201704
  5. HYDROCHLOROTHIAZIDE. [Concomitant]
     Active Substance: HYDROCHLOROTHIAZIDE
     Indication: PRODUCT USED FOR UNKNOWN INDICATION
     Dosage: UNK
  6. REFRESH TEARS [Concomitant]
     Active Substance: CARBOXYMETHYLCELLULOSE SODIUM
     Indication: PRODUCT USED FOR UNKNOWN INDICATION
     Dosage: 1 GTT, AS NECESSARY, OU

REACTIONS (9)
  - Dry age-related macular degeneration [Unknown]
  - Detachment of macular retinal pigment epithelium [Unknown]
  - Drug dose omission [Unknown]
  - Vitreous detachment [Unknown]
  - Lenticular opacities [Unknown]
  - Visual impairment [Unknown]
  - Ocular hypertension [Unknown]
  - Intraocular lens implant [Unknown]
  - Eye naevus [Unknown]

NARRATIVE: CASE EVENT DATE: 20180727
